FAERS Safety Report 24032981 (Version 1)
Quarter: 2024Q3

REPORT INFORMATION
  Report Type: Spontaneous
  Country: US (occurrence: US)
  Receive Date: 20240701
  Receipt Date: 20240701
  Transmission Date: 20241016
  Serious: No
  Sender: AMGEN
  Company Number: US-AMGEN-USASP2024127480

PATIENT
  Sex: Male

DRUGS (1)
  1. TEPEZZA [Suspect]
     Active Substance: TEPROTUMUMAB-TRBW
     Indication: Product used for unknown indication
     Dosage: 10 MILLIGRAM/KILOGRAM, (FIRST INFUSION, 10MG/KG GUESSING)
     Route: 042

REACTIONS (2)
  - Hypertension [Unknown]
  - Tachycardia [Unknown]
